FAERS Safety Report 8110153-X (Version None)
Quarter: 2012Q1

REPORT INFORMATION
  Report Type: 
  Country: None (occurrence: None)
  Receive Date: 20120202
  Receipt Date: 20120123
  Transmission Date: 20120608
  Serious: Yes (Hospitalization, Other)
  Sender: FDA-Public Use
  Company Number: CN-NOVOPROD-343729

PATIENT
  Age: 15 Year
  Sex: Female
  Weight: 29 kg

DRUGS (1)
  1. NORDITROPIN [Suspect]
     Indication: GROWTH HORMONE DEFICIENCY
     Dosage: 2-3 U, QD
     Dates: start: 20090201, end: 20100701

REACTIONS (1)
  - YOLK SAC TUMOUR SITE UNSPECIFIED [None]
